FAERS Safety Report 10516889 (Version 1)
Quarter: 2014Q4

REPORT INFORMATION
  Report Type: Spontaneous
  Country: GB (occurrence: GB)
  Receive Date: 20141014
  Receipt Date: 20141014
  Transmission Date: 20150528
  Serious: Yes (Disabling)
  Sender: FDA-Public Use
  Company Number: GB-TEVA-513829ISR

PATIENT
  Age: 44 Year
  Sex: Male

DRUGS (1)
  1. COPAXONE [Suspect]
     Active Substance: GLATIRAMER ACETATE
     Indication: MULTIPLE SCLEROSIS
     Dosage: STANDARD MS DOSAGE. TAKES AT LUNCHTIME.
     Dates: start: 20130901, end: 201403

REACTIONS (5)
  - Malaise [Recovering/Resolving]
  - Dyspnoea [Recovering/Resolving]
  - Upper respiratory tract congestion [Not Recovered/Not Resolved]
  - Nasal congestion [Not Recovered/Not Resolved]
  - Suffocation feeling [Recovering/Resolving]
